FAERS Safety Report 20673267 (Version 2)
Quarter: 2022Q2

REPORT INFORMATION
  Report Type: Other
  Country: CN (occurrence: None)
  Receive Date: 20220405
  Receipt Date: 20220617
  Transmission Date: 20220721
  Serious: Yes (Other)
  Sender: FDA-Public Use
  Company Number: CN-ROCHE-2021810

PATIENT
  Sex: Male
  Weight: 58.5 kg

DRUGS (1)
  1. AVASTIN [Suspect]
     Active Substance: BEVACIZUMAB
     Indication: Rectal cancer
     Route: 041
     Dates: start: 20170908, end: 20210818

REACTIONS (4)
  - Renal impairment [Unknown]
  - Anal fistula [Unknown]
  - Renal hydrocele [Unknown]
  - Drug resistance [Unknown]
